FAERS Safety Report 10005996 (Version 2)
Quarter: 2014Q1

REPORT INFORMATION
  Report Type: Spontaneous
  Country: AT (occurrence: AT)
  Receive Date: 20140313
  Receipt Date: 20140317
  Transmission Date: 20141002
  Serious: No
  Sender: FDA-Public Use
  Company Number: AT-MERCK-1403AUT006148

PATIENT
  Sex: 0

DRUGS (1)
  1. ISENTRESS [Suspect]
     Route: 048

REACTIONS (1)
  - Fat redistribution [Unknown]
